FAERS Safety Report 10220839 (Version 1)
Quarter: 2014Q2

REPORT INFORMATION
  Report Type: Spontaneous
  Country: IN (occurrence: None)
  Receive Date: 20140604
  Receipt Date: 20140604
  Transmission Date: 20141212
  Serious: Yes (Other)
  Sender: FDA-Public Use
  Company Number: 2014P1003838

PATIENT
  Age: 52 Year
  Sex: Male

DRUGS (9)
  1. OLANZAPINE [Suspect]
     Indication: ANXIETY DISORDER
  2. OLANZAPINE [Suspect]
  3. PAROXETINE [Concomitant]
  4. MIRTAZAPINE [Concomitant]
  5. TOPIRAMATE [Concomitant]
  6. SERTRALINE [Concomitant]
  7. AMOXAPINE [Concomitant]
  8. FLUVOXAMINE [Concomitant]
  9. OXCARBAZEPINE [Concomitant]

REACTIONS (1)
  - Meige^s syndrome [None]
